FAERS Safety Report 24405944 (Version 1)
Quarter: 2024Q4

REPORT INFORMATION
  Report Type: Spontaneous
  Country: DK (occurrence: DK)
  Receive Date: 20241007
  Receipt Date: 20241007
  Transmission Date: 20250115
  Serious: Yes (Hospitalization, Other)
  Sender: CELLTRION
  Company Number: DK-Accord-376185

PATIENT

DRUGS (26)
  1. RITUXIMAB [Suspect]
     Active Substance: RITUXIMAB
     Indication: Follicular lymphoma stage IV
     Dosage: C1D1
     Dates: start: 20211025
  2. EPCORITAMAB [Suspect]
     Active Substance: EPCORITAMAB
     Indication: Follicular lymphoma stage IV
     Dosage: C1D1 (ADDITIONAL INFORMATION ON DRUG (FREE TEXT): DUOBODY-CD3XCD20; REGIMEN 1 DOSE DELAYED)
     Route: 058
     Dates: start: 20211026, end: 20211026
  3. EPCORITAMAB [Suspect]
     Active Substance: EPCORITAMAB
     Dosage: C1D8 (ADDITIONAL INFORMATION ON DRUG (FREE TEXT): DUOBODY-CD3XCD20; REGIMEN 1 DOSE DELAYED)
     Route: 058
     Dates: start: 20211102, end: 20211102
  4. EPCORITAMAB [Suspect]
     Active Substance: EPCORITAMAB
     Dosage: C1D15 (ADDITIONAL INFORMATION ON DRUG (FREE TEXT): DUOBODY-CD3XCD20; REGIMEN 1 DOSE DELAYED)
     Route: 058
     Dates: start: 20211109, end: 20211109
  5. EPCORITAMAB [Suspect]
     Active Substance: EPCORITAMAB
     Dosage: C1D1 (ADDITIONAL INFORMATION ON DRUG (FREE TEXT): DUOBODY-CD3XCD20; REGIMEN 1 DOSE DELAYED)
     Route: 058
     Dates: start: 20211126, end: 20211126
  6. BENDAMUSTINE [Suspect]
     Active Substance: BENDAMUSTINE
     Indication: Follicular lymphoma stage IV
     Dosage: C1D1, 90 MILLIGRAM/SQ. METER, QD (ADDITIONAL INFORMATION ON DRUG (FREE TEXT): REGIMEN 1)
     Dates: start: 20211025, end: 20211026
  7. FLUCONAZOLE [Concomitant]
     Active Substance: FLUCONAZOLE
     Dosage: UNK
     Dates: start: 20211116, end: 20211209
  8. METOCLOPRAMIDE [Concomitant]
     Active Substance: METOCLOPRAMIDE
     Dosage: UNK
     Dates: start: 20211117, end: 20211221
  9. PREDNISOLONE [Concomitant]
     Active Substance: PREDNISOLONE
     Indication: Prophylaxis
     Dosage: 100 MG
     Route: 048
     Dates: start: 20211109, end: 20211112
  10. PREDNISOLONE [Concomitant]
     Active Substance: PREDNISOLONE
     Indication: Premedication
     Dosage: 100 MG
     Route: 048
     Dates: start: 20211109, end: 20211109
  11. PREDNISOLONE [Concomitant]
     Active Substance: PREDNISOLONE
     Dosage: 100 MG
     Route: 048
     Dates: start: 20211123, end: 20211126
  12. CETIRIZINE [Concomitant]
     Active Substance: CETIRIZINE HYDROCHLORIDE
     Dosage: UNK
     Dates: start: 20211025, end: 20211123
  13. CETIRIZINE [Concomitant]
     Active Substance: CETIRIZINE HYDROCHLORIDE
     Dosage: UNK
     Dates: start: 20211102, end: 20220221
  14. ACETAMINOPHEN [Concomitant]
     Active Substance: ACETAMINOPHEN
     Indication: Premedication
     Dosage: 1000 MG
     Route: 048
     Dates: start: 20211109, end: 20211109
  15. ACETAMINOPHEN [Concomitant]
     Active Substance: ACETAMINOPHEN
     Dosage: 1000 MG
     Route: 048
     Dates: start: 20211123, end: 20211123
  16. ACETAMINOPHEN [Concomitant]
     Active Substance: ACETAMINOPHEN
     Dosage: UNK
     Dates: start: 20211025
  17. ONDANSETRON [Concomitant]
     Active Substance: ONDANSETRON
     Dosage: UNK
     Dates: start: 20211025, end: 20211026
  18. ALBUTEROL [Concomitant]
     Active Substance: ALBUTEROL
     Dosage: UNK
     Dates: start: 20211025, end: 20211211
  19. CALCIUM CARBONATE [Concomitant]
     Active Substance: CALCIUM CARBONATE
     Dosage: (ADDITIONAL INFORMATION ON DRUG (FREE TEXT): UNIKALK BASIC ONGOING)
     Dates: start: 20211026
  20. ZOPICLONE [Concomitant]
     Active Substance: ZOPICLONE
     Dosage: UNK
     Dates: start: 20211113, end: 20211221
  21. SODIUM CHLORIDE [Concomitant]
     Active Substance: SODIUM CHLORIDE
     Dosage: UNK
     Dates: start: 20211025, end: 20211025
  22. BISACODYL [Concomitant]
     Active Substance: BISACODYL
     Dosage: UNK
     Dates: start: 20211116, end: 20211221
  23. SODIUM PICOSULFATE [Concomitant]
     Active Substance: SODIUM PICOSULFATE
     Dosage: ADDITIONAL INFORMATION ON DRUG (FREE TEXT): NATRIUM PICOSULFAT
     Dates: start: 20211115, end: 20211221
  24. ACYCLOVIR [Concomitant]
     Active Substance: ACYCLOVIR
     Dosage: UNK
     Dates: start: 20211115, end: 20211130
  25. SOLU-MEDROL [Concomitant]
     Active Substance: METHYLPREDNISOLONE SODIUM SUCCINATE
     Dosage: UNK
     Dates: start: 20211025, end: 20211112
  26. BIOCLAVID [Concomitant]
     Active Substance: AMOXICILLIN\CLAVULANIC ACID
     Dosage: UNK
     Dates: start: 20211111, end: 20211113

REACTIONS (2)
  - Cytokine release syndrome [Recovered/Resolved]
  - Cholecystitis infective [Recovered/Resolved]

NARRATIVE: CASE EVENT DATE: 20211110
